FAERS Safety Report 5033831-8 (Version None)
Quarter: 2006Q2

REPORT INFORMATION
  Report Type: 
  Country: None (occurrence: None)
  Receive Date: 20060518
  Receipt Date: 20050331
  Transmission Date: 20061013
  Serious: Yes (Other)
  Sender: FDA-Public Use
  Company Number: 2005026393

PATIENT
  Age: 30 Year
  Sex: Female
  Weight: 79.3795 kg

DRUGS (7)
  1. DEPO-PROVERA [Suspect]
     Indication: CONTRACEPTION
     Dosage: (150 MG,1ST INJECTION, EVERY 3 MONTHS),INTRAMUSCULAR
     Route: 030
     Dates: start: 19950101, end: 19950101
  2. DEPO-PROVERA [Suspect]
     Indication: ENDOMETRIOSIS
     Dosage: (150 MG,1ST INJECTION, EVERY 3 MONTHS),INTRAMUSCULAR
     Route: 030
     Dates: start: 19950101, end: 19950101
  3. VICODIN [Concomitant]
  4. MORPHINE [Concomitant]
  5. VICODIN [Concomitant]
  6. XANAX [Concomitant]
  7. MONTELUKAST SODIUM (MONTELUKAST SODIUM) [Concomitant]

REACTIONS (1)
  - BONE DENSITY DECREASED [None]
